FAERS Safety Report 14472174 (Version 1)
Quarter: 2018Q1

REPORT INFORMATION
  Report Type: Spontaneous
  Country: CN (occurrence: CN)
  Receive Date: 20180131
  Receipt Date: 20180131
  Transmission Date: 20180509
  Serious: Yes (Life-Threatening, Hospitalization, Other)
  Sender: FDA-Public Use
  Company Number: CN-MYLANLABS-2018M1005783

PATIENT
  Age: 62 Year
  Sex: Male

DRUGS (3)
  1. AMIODARONE [Interacting]
     Active Substance: AMIODARONE
     Dosage: 600MG DAILY
     Route: 048
  2. AMIODARONE [Suspect]
     Active Substance: AMIODARONE
     Indication: EXTRASYSTOLES
     Dosage: 450MG BOLUS
     Route: 040
  3. FLUOXETINE [Interacting]
     Active Substance: FLUOXETINE HYDROCHLORIDE
     Indication: DEPRESSION
     Dosage: 20MG DAILY
     Route: 065

REACTIONS (3)
  - Torsade de pointes [Recovered/Resolved]
  - Electrocardiogram QT prolonged [Recovered/Resolved]
  - Drug interaction [Recovered/Resolved]
